FAERS Safety Report 17409476 (Version 2)
Quarter: 2022Q4

REPORT INFORMATION
  Report Type: Spontaneous
  Country: CA (occurrence: CA)
  Receive Date: 20200212
  Receipt Date: 20221114
  Transmission Date: 20230112
  Serious: Yes (Other)
  Sender: FDA-Public Use
  Company Number: CA-PFIZER INC-2020058515

PATIENT
  Sex: Female

DRUGS (5)
  1. METHOTREXATE SODIUM [Suspect]
     Active Substance: METHOTREXATE SODIUM
     Dosage: UNK
     Dates: start: 2009, end: 2012
  2. IMURAN [Suspect]
     Active Substance: AZATHIOPRINE
     Dosage: UNK
  3. FERRIC POLYSACCHARIDE COMPLEX [Suspect]
     Active Substance: FERRIC POLYSACCHARIDE COMPLEX
     Dosage: 250 MG, 2X/DAY
     Dates: start: 201607
  4. PREDNISONE [Suspect]
     Active Substance: PREDNISONE
     Dosage: UNK
  5. BIOTIN [Suspect]
     Active Substance: BIOTIN
     Dosage: UNK UNK, 1X/DAY (ONCE DAILY)
     Dates: start: 201607

REACTIONS (3)
  - Breast abscess [Unknown]
  - Breast mass [Unknown]
  - Therapeutic response decreased [Unknown]
